FAERS Safety Report 7529615-9 (Version None)
Quarter: 2011Q2

REPORT INFORMATION
  Report Type: 
  Country: None (occurrence: None)
  Receive Date: 20110607
  Receipt Date: 20110519
  Transmission Date: 20111010
  Serious: Yes (Death)
  Sender: FDA-Public Use
  Company Number: A0790245A

PATIENT
  Age: 55 Year
  Sex: Male

DRUGS (5)
  1. GLUCOPHAGE [Concomitant]
  2. AVANDAMET [Suspect]
     Route: 048
     Dates: end: 20070601
  3. CRESTOR [Concomitant]
  4. AVANDIA [Suspect]
     Dosage: 8MG PER DAY
     Route: 048
     Dates: start: 20040101, end: 20070724
  5. LOTREL [Concomitant]

REACTIONS (2)
  - ARTERIOSCLEROSIS [None]
  - MYOCARDIAL INFARCTION [None]
